FAERS Safety Report 24132396 (Version 1)
Quarter: 2024Q3

REPORT INFORMATION
  Report Type: Spontaneous
  Country: CN (occurrence: CN)
  Receive Date: 20240724
  Receipt Date: 20240724
  Transmission Date: 20241016
  Serious: Yes (Other)
  Sender: GE HEALTHCARE
  Company Number: CN-GE HEALTHCARE-2024CSU007237

PATIENT
  Age: 72 Year
  Sex: Male
  Weight: 60 kg

DRUGS (2)
  1. OMNIPAQUE [Suspect]
     Active Substance: IOHEXOL
     Indication: Lumbar puncture
     Dosage: 6 GM, TOTAL
     Route: 037
     Dates: start: 20240530, end: 20240530
  2. OMNIPAQUE [Suspect]
     Active Substance: IOHEXOL
     Indication: Spinal myelogram

REACTIONS (4)
  - Overdose [Unknown]
  - Seizure [Recovered/Resolved]
  - Dysphoria [Recovered/Resolved]
  - Tremor [Recovered/Resolved]

NARRATIVE: CASE EVENT DATE: 20240530
